FAERS Safety Report 4389389-X (Version None)
Quarter: 2004Q3

REPORT INFORMATION
  Report Type: 
  Country: None (occurrence: None)
  Receive Date: 20040701
  Receipt Date: 20040701
  Transmission Date: 20050211
  Serious: Yes (Hospitalization)
  Sender: FDA-Public Use
  Company Number: None

PATIENT
  Age: 56 Year
  Sex: Female
  Weight: 102.4 kg

DRUGS (12)
  1. AVANDIA [Suspect]
     Indication: DIABETES MELLITUS NON-INSULIN-DEPENDENT
     Dosage: 4 MG TWICE DAIL ORAL
     Route: 048
     Dates: start: 20031230, end: 20040623
  2. ROSIGLITAZONE [Concomitant]
  3. SOTALOL HCL [Concomitant]
  4. DIGOXIN [Concomitant]
  5. LISINOPRIL [Concomitant]
  6. GLIPIZIDE [Concomitant]
  7. NIACIN [Concomitant]
  8. FLORINEF [Concomitant]
  9. GEMFIBROZIL [Concomitant]
  10. ACIPHEX [Concomitant]
  11. HYDROCHLOROTHIAZIDE [Concomitant]
  12. LANTUS [Concomitant]

REACTIONS (11)
  - ATRIAL FIBRILLATION [None]
  - DIARRHOEA [None]
  - DYSPNOEA [None]
  - NAUSEA [None]
  - OEDEMA [None]
  - OEDEMA PERIPHERAL [None]
  - PANCYTOPENIA [None]
  - PLEURAL EFFUSION [None]
  - PROTEIN S DEFICIENCY [None]
  - VOMITING [None]
  - WEIGHT INCREASED [None]
